FAERS Safety Report 9106539 (Version 5)
Quarter: 2014Q4

REPORT INFORMATION
  Report Type: Spontaneous
  Country: US (occurrence: US)
  Receive Date: 20130221
  Receipt Date: 20141001
  Transmission Date: 20150529
  Serious: Yes (Hospitalization, Other)
  Sender: FDA-Public Use
  Company Number: US-009507513-1205USA02637

PATIENT
  Sex: Female
  Weight: 67.12 kg

DRUGS (6)
  1. LIPITOR [Concomitant]
     Active Substance: ATORVASTATIN CALCIUM
     Indication: BLOOD CHOLESTEROL INCREASED
  2. BONIVA [Suspect]
     Active Substance: IBANDRONATE SODIUM
     Indication: OSTEOPENIA
  3. CALAN SR [Concomitant]
     Active Substance: VERAPAMIL HYDROCHLORIDE
     Indication: HYPERTENSION
  4. FOSAMAX [Suspect]
     Active Substance: ALENDRONATE SODIUM
     Indication: OSTEOPOROSIS
     Dosage: 70 MG, QW
     Route: 048
     Dates: start: 1999, end: 2005
  5. FOSAMAX [Suspect]
     Active Substance: ALENDRONATE SODIUM
     Indication: OSTEOPENIA
  6. BONIVA [Suspect]
     Active Substance: IBANDRONATE SODIUM
     Indication: OSTEOPOROSIS
     Dosage: UNK
     Dates: start: 2005, end: 2009

REACTIONS (27)
  - Skin abrasion [Unknown]
  - Peripheral vascular disorder [Unknown]
  - Packed red blood cell transfusion [Unknown]
  - Spinal compression fracture [Unknown]
  - Impaired healing [Unknown]
  - Osteoarthritis [Unknown]
  - Hyperlipidaemia [Unknown]
  - Carotid endarterectomy [Unknown]
  - Renal failure [Unknown]
  - Femur fracture [Recovered/Resolved]
  - Bone scan abnormal [Unknown]
  - Contusion [Unknown]
  - Osteoarthritis [Unknown]
  - Intramedullary rod insertion [Unknown]
  - Femur fracture [Unknown]
  - Fall [Unknown]
  - Hand fracture [Unknown]
  - Dysphagia [Unknown]
  - Back pain [Not Recovered/Not Resolved]
  - Depression [Unknown]
  - Spinal osteoarthritis [Unknown]
  - Coronary artery disease [Unknown]
  - Bladder operation [Unknown]
  - Low turnover osteopathy [Unknown]
  - Spinal compression fracture [Unknown]
  - Spinal compression fracture [Unknown]
  - Anaemia postoperative [Unknown]

NARRATIVE: CASE EVENT DATE: 20081223
